FAERS Safety Report 5619731-0 (Version None)
Quarter: 2008Q1

REPORT INFORMATION
  Report Type: 
  Country: None (occurrence: None)
  Receive Date: 20080208
  Receipt Date: 20071129
  Transmission Date: 20080703
  Serious: No
  Sender: FDA-Public Use
  Company Number: A0695179A

PATIENT
  Age: 9 Year
  Sex: Female
  Weight: 36 kg

DRUGS (2)
  1. ALTABAX [Suspect]
     Indication: MOLLUSCUM CONTAGIOSUM
     Dosage: 1APP TWICE PER DAY
     Route: 061
     Dates: start: 20071023, end: 20071101
  2. BACTRIM [Concomitant]

REACTIONS (1)
  - SKIN HYPERPIGMENTATION [None]
